FAERS Safety Report 26068948 (Version 1)
Quarter: 2025Q4

REPORT INFORMATION
  Report Type: Other
  Country: JP (occurrence: JP)
  Receive Date: 20251120
  Receipt Date: 20251120
  Transmission Date: 20260117
  Serious: Yes (Other)
  Sender: ESTEVE
  Company Number: JP-Esteve Pharmaceuticals SA-2188956

PATIENT
  Age: 67 Year
  Sex: Female

DRUGS (7)
  1. METOPIRONE [Suspect]
     Active Substance: METYRAPONE
     Indication: Cushing^s syndrome
  2. METOPIRONE [Suspect]
     Active Substance: METYRAPONE
  3. OSILODROSTAT [Concomitant]
     Active Substance: OSILODROSTAT
  4. OSILODROSTAT [Concomitant]
     Active Substance: OSILODROSTAT
  5. METOPIRONE [Suspect]
     Active Substance: METYRAPONE
  6. METOPIRONE [Suspect]
     Active Substance: METYRAPONE
  7. METOPIRONE [Suspect]
     Active Substance: METYRAPONE

REACTIONS (1)
  - Drug-induced liver injury [Unknown]
